FAERS Safety Report 13303740 (Version 5)
Quarter: 2017Q4

REPORT INFORMATION
  Report Type: Spontaneous
  Country: CA (occurrence: CA)
  Receive Date: 20170307
  Receipt Date: 20171127
  Transmission Date: 20180320
  Serious: Yes (Hospitalization, Other)
  Sender: FDA-Public Use
  Company Number: CA-BIOMARINAP-CA-2017-112902

PATIENT
  Sex: Female
  Weight: 48 kg

DRUGS (1)
  1. KUVAN [Suspect]
     Active Substance: SAPROPTERIN DIHYDROCHLORIDE
     Indication: PHENYLKETONURIA
     Dosage: 1000 MG, QD
     Route: 048
     Dates: start: 20170215, end: 20170311

REACTIONS (11)
  - Uterine spasm [Unknown]
  - Amino acid level increased [Unknown]
  - Maternal exposure during pregnancy [Recovered/Resolved]
  - Post abortion haemorrhage [Unknown]
  - Vomiting [Unknown]
  - Abortion spontaneous [Unknown]
  - Uterine enlargement [Unknown]
  - Somnolence [Unknown]
  - Haemorrhage [Unknown]
  - Nausea [Recovered/Resolved]
  - Anaemia [Recovering/Resolving]
